FAERS Safety Report 10167264 (Version 2)
Quarter: 2014Q2

REPORT INFORMATION
  Report Type: Spontaneous
  Country: HU (occurrence: HU)
  Receive Date: 20140512
  Receipt Date: 20140515
  Transmission Date: 20141212
  Serious: Yes (Death)
  Sender: FDA-Public Use
  Company Number: HU-ACTELION-A-CH2014-98776

PATIENT
  Age: 60 Year
  Sex: Female

DRUGS (3)
  1. TRACLEER [Suspect]
     Indication: PULMONARY ARTERIAL HYPERTENSION
     Dosage: 125 MG, BID
     Route: 048
     Dates: start: 20131011, end: 20140507
  2. TRACLEER [Suspect]
     Dosage: 62.5 MG, BID
     Route: 048
     Dates: start: 20130913, end: 20131010
  3. TADALAFIL [Concomitant]
     Dosage: UNK
     Dates: start: 20140420

REACTIONS (4)
  - Right ventricular failure [Fatal]
  - Sepsis [Fatal]
  - Erysipelas [Unknown]
  - Skin ulcer [Unknown]
